FAERS Safety Report 5279257-3 (Version None)
Quarter: 2007Q1

REPORT INFORMATION
  Report Type: 
  Country: None (occurrence: None)
  Receive Date: 20061213
  Receipt Date: 20051128
  Transmission Date: 20070707
  Serious: No
  Sender: FDA-Public Use
  Company Number: 2005UW17937

PATIENT
  Age: 40 Year
  Sex: Female
  Weight: 65.77 kg

DRUGS (3)
  1. SEROQUEL [Suspect]
     Indication: SCHIZOPHRENIA
     Dosage: INCREASED TO 150-200 MG
  2. SEROQUEL [Suspect]
     Indication: SCHIZOPHRENIA
     Dosage: 100 MG PO
     Route: 048
  3. TRILEPTAL [Concomitant]

REACTIONS (3)
  - BLOOD CREATININE INCREASED [None]
  - COMMUNICATION DISORDER [None]
  - NEUROLEPTIC MALIGNANT SYNDROME [None]
